FAERS Safety Report 19220591 (Version 1)
Quarter: 2021Q2

REPORT INFORMATION
  Report Type: Spontaneous
  Country: CN (occurrence: CN)
  Receive Date: 20210505
  Receipt Date: 20210505
  Transmission Date: 20210717
  Serious: Yes (Hospitalization)
  Sender: FDA-Public Use
  Company Number: CN-JNJFOC-20210454370

PATIENT
  Age: 40 Year
  Sex: Female
  Weight: 62.5 kg

DRUGS (4)
  1. CEFTAZIDIME. [Concomitant]
     Active Substance: CEFTAZIDIME
     Indication: ADJUVANT THERAPY
     Route: 041
     Dates: start: 20210416, end: 20210417
  2. METRONIDAZOLE;SODIUM CHLORIDE [Concomitant]
     Indication: ADJUVANT THERAPY
     Route: 041
     Dates: start: 20210417, end: 20210417
  3. SULPERAZON [Concomitant]
     Active Substance: CEFOPERAZONE SODIUM\SULBACTAM SODIUM
     Indication: ADJUVANT THERAPY
     Route: 041
     Dates: start: 20210417, end: 20210419
  4. CHILDRENS MOTRIN [Suspect]
     Active Substance: IBUPROFEN
     Indication: ADJUVANT THERAPY
     Route: 048
     Dates: start: 20210416, end: 20210416

REACTIONS (1)
  - White blood cell count decreased [Recovered/Resolved]

NARRATIVE: CASE EVENT DATE: 20210419
